FAERS Safety Report 5226132-6 (Version None)
Quarter: 2007Q1

REPORT INFORMATION
  Report Type: 
  Country: None (occurrence: None)
  Receive Date: 20070201
  Receipt Date: 20070126
  Transmission Date: 20070707
  Serious: Yes (Other)
  Sender: FDA-Public Use
  Company Number: JP-GLAXOSMITHKLINE-B0456021A

PATIENT
  Age: 28 Year
  Sex: Male

DRUGS (7)
  1. PAXIL [Suspect]
     Indication: DEPRESSION
     Route: 048
     Dates: start: 20061003
  2. ETIZOLAM [Concomitant]
     Route: 048
  3. LENDORMIN [Concomitant]
     Route: 048
  4. NITRAZEPAM [Concomitant]
     Route: 048
  5. LITHIUM CARBONATE [Concomitant]
     Route: 048
  6. VEGETAMIN-B [Concomitant]
     Route: 048
  7. RISPERDAL [Concomitant]
     Route: 048

REACTIONS (1)
  - MANIA [None]
